FAERS Safety Report 17464925 (Version 1)
Quarter: 2020Q1

REPORT INFORMATION
  Report Type: Spontaneous
  Country: US (occurrence: US)
  Receive Date: 20200226
  Receipt Date: 20200226
  Transmission Date: 20200409
  Serious: No
  Sender: FDA-Public Use
  Company Number: US-ROCHE-2449574

PATIENT
  Sex: Male
  Weight: 61.29 kg

DRUGS (1)
  1. ALECENSA [Suspect]
     Active Substance: ALECTINIB HYDROCHLORIDE
     Indication: LUNG NEOPLASM MALIGNANT
     Dosage: FEEDING TUBE PLACED OCTOBER 2019 ;ONGOING: YES
     Route: 048

REACTIONS (2)
  - Product administration error [Unknown]
  - Dysphagia [Unknown]
